FAERS Safety Report 11006377 (Version 1)
Quarter: 2015Q2

REPORT INFORMATION
  Report Type: Spontaneous
  Country: None (occurrence: US)
  Receive Date: 20150409
  Receipt Date: 20150409
  Transmission Date: 20150821
  Serious: No
  Sender: FDA-Public Use
  Company Number: US-ALLERGAN-1417316US

PATIENT
  Age: 67 Year
  Sex: Female

DRUGS (1)
  1. LATISSE [Suspect]
     Active Substance: BIMATOPROST
     Indication: GROWTH OF EYELASHES

REACTIONS (4)
  - Hair growth abnormal [Unknown]
  - Madarosis [Unknown]
  - Wrong technique in drug usage process [Unknown]
  - Drug ineffective [Unknown]
